FAERS Safety Report 5911482-8 (Version None)
Quarter: 2008Q4

REPORT INFORMATION
  Report Type: 
  Country: None (occurrence: None)
  Receive Date: 20081007
  Receipt Date: 20080923
  Transmission Date: 20090506
  Serious: Yes (Other)
  Sender: FDA-Public Use
  Company Number: AU-GENENTECH-224837

PATIENT
  Sex: Male
  Weight: 75 kg

DRUGS (11)
  1. BEVACIZUMAB [Suspect]
     Indication: COLON CANCER
     Dosage: 370 MG, Q2W
     Route: 042
     Dates: start: 20060104
  2. BEVACIZUMAB [Suspect]
  3. OXALIPLATIN [Suspect]
     Indication: COLON CANCER
     Dosage: 160 MG, Q2W
     Route: 042
     Dates: start: 20060104, end: 20060522
  4. LEUCOVORIN CALCIUM [Suspect]
     Indication: COLON CANCER
     Dosage: 375 MG, 4/MONTH
     Route: 042
     Dates: start: 20060104
  5. FLUOROURACIL [Suspect]
     Indication: COLON CANCER
     Dosage: 1120 MG, 4/MONTH
     Route: 042
  6. FLUOROURACIL [Suspect]
     Dosage: 745 MG, 4/MONTH
     Route: 040
     Dates: start: 20060104
  7. ONDANSETRON [Concomitant]
     Indication: DRUG USE FOR UNKNOWN INDICATION
     Dates: start: 20060104
  8. MAXOLON [Concomitant]
     Indication: DRUG USE FOR UNKNOWN INDICATION
     Dates: start: 20060104
  9. DEXAMETHASONE [Concomitant]
     Indication: DRUG USE FOR UNKNOWN INDICATION
     Dates: start: 20060104
  10. AMOXICILLIN [Concomitant]
     Indication: DRUG USE FOR UNKNOWN INDICATION
     Dates: start: 20060419
  11. PHENERGAN HCL [Concomitant]
     Indication: DRUG USE FOR UNKNOWN INDICATION
     Dosage: UNK
     Dates: start: 20050522, end: 20060522

REACTIONS (1)
  - HYPERSENSITIVITY [None]
